FAERS Safety Report 20123578 (Version 11)
Quarter: 2022Q4

REPORT INFORMATION
  Report Type: Report from Study
  Country: CA (occurrence: CA)
  Receive Date: 20211129
  Receipt Date: 20221201
  Transmission Date: 20230113
  Serious: Yes (Hospitalization, Other)
  Sender: FDA-Public Use
  Company Number: CA-UCBSA-2021044113

PATIENT
  Sex: Female

DRUGS (4)
  1. CERTOLIZUMAB PEGOL [Suspect]
     Active Substance: CERTOLIZUMAB PEGOL
     Indication: Juvenile idiopathic arthritis
     Dosage: 400 MILLIGRAM, EV 2 WEEKS(QOW)
     Route: 058
     Dates: start: 20210910
  2. CERTOLIZUMAB PEGOL [Suspect]
     Active Substance: CERTOLIZUMAB PEGOL
     Indication: Off label use
     Dosage: 200 MILLIGRAM, EV 2 WEEKS(QOW)
     Route: 058
  3. CORTISONE [Concomitant]
     Active Substance: CORTISONE
     Indication: Pneumonia
     Route: 042
  4. POTASSIUM [Concomitant]
     Active Substance: POTASSIUM
     Indication: Pneumonia

REACTIONS (21)
  - Pneumonia [Not Recovered/Not Resolved]
  - Juvenile idiopathic arthritis [Recovered/Resolved]
  - Bronchitis [Not Recovered/Not Resolved]
  - Sinusitis [Recovering/Resolving]
  - Odynophagia [Unknown]
  - Pyrexia [Unknown]
  - Cough [Unknown]
  - Oral herpes [Unknown]
  - Infection [Recovered/Resolved]
  - Dry mouth [Unknown]
  - Fatigue [Unknown]
  - Secretion discharge [Unknown]
  - Dyspnoea [Recovering/Resolving]
  - Bronchospasm [Recovering/Resolving]
  - Injection site pain [Unknown]
  - COVID-19 [Recovering/Resolving]
  - Gait inability [Recovered/Resolved]
  - Off label use [Unknown]
  - Needle issue [Unknown]
  - Inappropriate schedule of product administration [Unknown]
  - Therapy interrupted [Unknown]

NARRATIVE: CASE EVENT DATE: 20210101
